FAERS Safety Report 4668990-X (Version None)
Quarter: 2005Q2

REPORT INFORMATION
  Report Type: 
  Country: None (occurrence: None)
  Receive Date: 20050523
  Receipt Date: 20050519
  Transmission Date: 20051028
  Serious: Yes (Life-Threatening)
  Sender: FDA-Public Use
  Company Number: FR-GLAXOSMITHKLINE-B0381679A

PATIENT
  Age: 46 Year
  Sex: Male

DRUGS (1)
  1. CLAMOXYL [Suspect]
     Indication: TOOTH EXTRACTION
     Dosage: 1UNIT SINGLE DOSE
     Route: 048
     Dates: start: 20050301, end: 20050301

REACTIONS (4)
  - ANAPHYLACTIC SHOCK [None]
  - BLOOD PRESSURE DECREASED [None]
  - FACE OEDEMA [None]
  - LOSS OF CONSCIOUSNESS [None]
